FAERS Safety Report 14328820 (Version 1)
Quarter: 2017Q4

REPORT INFORMATION
  Report Type: Spontaneous
  Country: US (occurrence: US)
  Receive Date: 20171227
  Receipt Date: 20171227
  Transmission Date: 20180321
  Serious: Yes (Hospitalization, Other)
  Sender: FDA-Public Use
  Company Number: US-ELI_LILLY_AND_COMPANY-US201712011284

PATIENT
  Age: 59 Year
  Sex: Female

DRUGS (2)
  1. HUMALOG [Suspect]
     Active Substance: INSULIN LISPRO
     Indication: TYPE 1 DIABETES MELLITUS
     Dosage: UNK, UNKNOWN
     Dates: start: 2007
  2. HUMALOG [Suspect]
     Active Substance: INSULIN LISPRO
     Dosage: UNK, UNKNOWN

REACTIONS (9)
  - Nasal cavity cancer [Recovered/Resolved]
  - Retinopathy [Not Recovered/Not Resolved]
  - Herpes zoster [Recovered/Resolved]
  - Renal failure [Recovered/Resolved]
  - Orthostatic hypotension [Recovered/Resolved]
  - Osteoporosis [Not Recovered/Not Resolved]
  - Cardiac murmur [Not Recovered/Not Resolved]
  - Neuropathy peripheral [Not Recovered/Not Resolved]
  - Patella fracture [Recovering/Resolving]

NARRATIVE: CASE EVENT DATE: 20151224
